FAERS Safety Report 9548260 (Version 1)
Quarter: 2013Q3

REPORT INFORMATION
  Report Type: Spontaneous
  Country: US (occurrence: None)
  Receive Date: 20130709
  Receipt Date: 20130709
  Transmission Date: 20140515
  Serious: Yes (Other)
  Sender: FDA-Public Use
  Company Number: 20120393

PATIENT
  Sex: Male

DRUGS (3)
  1. CYANOCOBALAMIN [Suspect]
     Indication: PRODUCT USED FOR UNKNOWN INDICATION
     Dates: start: 20120524
  2. FLOMAX DOSE AND FREQUENCY UNKNOWN [Concomitant]
  3. GEMFIBROZIL [Concomitant]

REACTIONS (3)
  - Urticaria [None]
  - Throat tightness [None]
  - Throat irritation [None]
